FAERS Safety Report 9820231 (Version 1)
Quarter: 2014Q1

REPORT INFORMATION
  Report Type: Spontaneous
  Country: US (occurrence: None)
  Receive Date: 20140113
  Receipt Date: 20140113
  Transmission Date: 20141002
  Serious: Yes (Life-Threatening, Hospitalization)
  Sender: FDA-Public Use
  Company Number: None

PATIENT
  Age: 20 Year
  Sex: Female
  Weight: 68.04 kg

DRUGS (2)
  1. TRINESSA [Suspect]
     Indication: CONTRACEPTION
     Dosage: 1 PILL
     Route: 048
     Dates: start: 20130904, end: 20131231
  2. MULTIVITAMIN [Concomitant]

REACTIONS (1)
  - Pulmonary embolism [None]
